FAERS Safety Report 18400354 (Version 1)
Quarter: 2020Q4

REPORT INFORMATION
  Report Type: Spontaneous
  Country: US (occurrence: US)
  Receive Date: 20201019
  Receipt Date: 20201019
  Transmission Date: 20210114
  Serious: No
  Sender: FDA-Public Use
  Company Number: US-ALLERGAN-1943330US

PATIENT
  Sex: Male

DRUGS (3)
  1. WELLBUTRIN [Concomitant]
     Active Substance: BUPROPION HYDROCHLORIDE
     Dosage: UNK
  2. VRAYLAR [Suspect]
     Active Substance: CARIPRAZINE
     Indication: PRODUCT USED FOR UNKNOWN INDICATION
     Dosage: 1.5 MG
  3. CYMBALTA [Concomitant]
     Active Substance: DULOXETINE HYDROCHLORIDE
     Dosage: UNK

REACTIONS (4)
  - Headache [Recovered/Resolved]
  - Tremor [Recovered/Resolved]
  - Dyskinesia [Recovered/Resolved]
  - Dizziness [Recovered/Resolved]
